FAERS Safety Report 9331130 (Version 1)
Quarter: 2013Q2

REPORT INFORMATION
  Report Type: Spontaneous
  Country: RU (occurrence: RU)
  Receive Date: 20130605
  Receipt Date: 20130605
  Transmission Date: 20140414
  Serious: Yes (Other)
  Sender: FDA-Public Use
  Company Number: RU-ABBOTT-13X-251-1095295-00

PATIENT
  Age: 12 Year
  Sex: Female

DRUGS (1)
  1. DEPAKINE CHRONO [Suspect]
     Indication: TEMPORAL LOBE EPILEPSY
     Dosage: EXTENDED RELEASE, 900 MILLIGRAM; DAILY
     Route: 048

REACTIONS (5)
  - Convulsion [Recovered/Resolved]
  - Daydreaming [Unknown]
  - Aggression [Recovered/Resolved]
  - Product counterfeit [Unknown]
  - Confusional state [Recovered/Resolved]
